FAERS Safety Report 8002541-7 (Version None)
Quarter: 2011Q4

REPORT INFORMATION
  Report Type: 
  Country: None (occurrence: None)
  Receive Date: 20111222
  Receipt Date: 20111215
  Transmission Date: 20120403
  Serious: Yes (Hospitalization, Other)
  Sender: FDA-Public Use
  Company Number: US-BAYER-2011-045414

PATIENT
  Age: 19 Year
  Sex: Female
  Weight: 63 kg

DRUGS (5)
  1. YAZ [Suspect]
     Dosage: UNK
     Route: 048
     Dates: start: 20060601, end: 20091101
  2. PHENERGAN [Concomitant]
  3. DROSPIRENONE AND ETHINYL ESTRADIOL [Suspect]
     Dosage: UNK
     Route: 048
     Dates: start: 20060601, end: 20091101
  4. IBUPROFEN [Concomitant]
     Dosage: UNK UNK, PRN
  5. VICODIN [Concomitant]

REACTIONS (7)
  - CHOLECYSTITIS CHRONIC [None]
  - GALLBLADDER DISORDER [None]
  - MENTAL DISORDER [None]
  - PULMONARY EMBOLISM [None]
  - DEEP VEIN THROMBOSIS [None]
  - MYOCARDIAL INFARCTION [None]
  - CEREBROVASCULAR ACCIDENT [None]
